FAERS Safety Report 16019431 (Version 1)
Quarter: 2019Q1

REPORT INFORMATION
  Report Type: Spontaneous
  Country: NO (occurrence: NO)
  Receive Date: 20190228
  Receipt Date: 20190228
  Transmission Date: 20190418
  Serious: Yes (Hospitalization, Other)
  Sender: FDA-Public Use
  Company Number: NO-BRACCO-2019NO00938

PATIENT
  Age: 30 Year
  Sex: Female

DRUGS (1)
  1. SONOVUE [Suspect]
     Active Substance: SULFUR HEXAFLUORIDE
     Indication: ULTRASOUND SCAN
     Dosage: EXACT DOSE NOT STATED IN REPORT
     Route: 042
     Dates: start: 20190130, end: 20190130

REACTIONS (1)
  - Contrast media reaction [Unknown]

NARRATIVE: CASE EVENT DATE: 20190130
